FAERS Safety Report 16190622 (Version 2)
Quarter: 2019Q3

REPORT INFORMATION
  Report Type: Spontaneous
  Country: US (occurrence: US)
  Receive Date: 20190412
  Receipt Date: 20190906
  Transmission Date: 20191004
  Serious: Yes (Other)
  Sender: FDA-Public Use
  Company Number: US-ASTRAZENECA-2019SE54592

PATIENT
  Age: 21735 Day
  Sex: Male

DRUGS (32)
  1. CARVEDILOL. [Concomitant]
     Active Substance: CARVEDILOL
  2. AZITHROMYCIN ANHYDROUS. [Concomitant]
     Active Substance: AZITHROMYCIN ANHYDROUS
  3. GLIMEPIRIDE. [Concomitant]
     Active Substance: GLIMEPIRIDE
  4. MECLIZINE [Concomitant]
     Active Substance: MECLIZINE HYDROCHLORIDE
  5. TESTOSTERONE. [Concomitant]
     Active Substance: TESTOSTERONE
  6. MOBIC [Concomitant]
     Active Substance: MELOXICAM
  7. ONGLYZA [Suspect]
     Active Substance: SAXAGLIPTIN HYDROCHLORIDE
     Indication: TYPE 2 DIABETES MELLITUS
     Route: 048
     Dates: start: 201201
  8. ONGLYZA [Suspect]
     Active Substance: SAXAGLIPTIN HYDROCHLORIDE
     Indication: TYPE 2 DIABETES MELLITUS
     Route: 048
     Dates: start: 20131011
  9. TIZANIDINE. [Concomitant]
     Active Substance: TIZANIDINE
  10. EPLERENONE. [Concomitant]
     Active Substance: EPLERENONE
  11. DULERA [Concomitant]
     Active Substance: FORMOTEROL FUMARATE DIHYDRATE\MOMETASONE FUROATE
  12. OMEPRAZOLE. [Concomitant]
     Active Substance: OMEPRAZOLE
  13. LEVITRA [Concomitant]
     Active Substance: VARDENAFIL HYDROCHLORIDE
  14. VIAGRA [Concomitant]
     Active Substance: SILDENAFIL CITRATE
  15. ALDACTONE [Concomitant]
     Active Substance: SPIRONOLACTONE
  16. ONGLYZA [Suspect]
     Active Substance: SAXAGLIPTIN HYDROCHLORIDE
     Indication: TYPE 2 DIABETES MELLITUS
     Route: 048
     Dates: start: 20131109, end: 20170316
  17. KOMBIGLYZE XR [Suspect]
     Active Substance: METFORMIN HYDROCHLORIDE\SAXAGLIPTIN HYDROCHLORIDE
     Indication: DIABETES MELLITUS
     Route: 048
     Dates: start: 20120713, end: 20131002
  18. FUROSEMIDE. [Concomitant]
     Active Substance: FUROSEMIDE
  19. PRAVASTATIN. [Concomitant]
     Active Substance: PRAVASTATIN
  20. FORTESTA [Concomitant]
     Active Substance: TESTOSTERONE
  21. NORCO [Concomitant]
     Active Substance: ACETAMINOPHEN\HYDROCODONE BITARTRATE
  22. MELOXICAM. [Concomitant]
     Active Substance: MELOXICAM
  23. AZITHROMYCIN ANHYDROUS. [Concomitant]
     Active Substance: AZITHROMYCIN ANHYDROUS
  24. TOVIAZ [Concomitant]
     Active Substance: FESOTERODINE FUMARATE
  25. PRILOSEC [Concomitant]
     Active Substance: OMEPRAZOLE MAGNESIUM
  26. LORATADINE. [Concomitant]
     Active Substance: LORATADINE
  27. ANDROGEL [Concomitant]
     Active Substance: TESTOSTERONE
  28. LISINOPRIL. [Concomitant]
     Active Substance: LISINOPRIL
  29. CYCLOBENZAPRINE. [Concomitant]
     Active Substance: CYCLOBENZAPRINE
  30. VOLTAREN [Concomitant]
     Active Substance: DICLOFENAC SODIUM
  31. STENDRA [Concomitant]
     Active Substance: AVANAFIL
  32. CIALIS [Concomitant]
     Active Substance: TADALAFIL

REACTIONS (2)
  - Cardiac failure congestive [Unknown]
  - Cardiac failure [Unknown]

NARRATIVE: CASE EVENT DATE: 20130920
